FAERS Safety Report 12680110 (Version 1)
Quarter: 2016Q3

REPORT INFORMATION
  Report Type: Spontaneous
  Country: US (occurrence: US)
  Receive Date: 20160824
  Receipt Date: 20160824
  Transmission Date: 20161109
  Serious: No
  Sender: FDA-Public Use
  Company Number: US-MYLANLABS-2016M1027176

PATIENT
  Age: 64 Year
  Sex: Female

DRUGS (1)
  1. NISOLDIPINE EXTENDED-RELEASE TABLETS [Suspect]
     Active Substance: NISOLDIPINE
     Indication: HYPERTENSION
     Dosage: 20 MG, QD
     Route: 048
     Dates: start: 20160617, end: 20160617

REACTIONS (1)
  - Heart rate increased [Recovered/Resolved]

NARRATIVE: CASE EVENT DATE: 20160617
